FAERS Safety Report 18587161 (Version 3)
Quarter: 2020Q4

REPORT INFORMATION
  Report Type: Spontaneous
  Country: NL (occurrence: NL)
  Receive Date: 20201207
  Receipt Date: 20201211
  Transmission Date: 20210114
  Serious: Yes (Life-Threatening)
  Sender: FDA-Public Use
  Company Number: NL-TEVA-2020-NL-1855160

PATIENT
  Age: 56 Year
  Sex: Male
  Weight: 84 kg

DRUGS (1)
  1. OXYCODON TABLET MGA  10MG / BRAND NAME NOT SPECIFIED [Suspect]
     Active Substance: OXYCODONE
     Indication: RADICULOPATHY
     Dosage: 20 MILLIGRAM DAILY; UNIT DOSE : 10 MG
     Dates: start: 202005, end: 20201005

REACTIONS (2)
  - Toxicity to various agents [Recovered/Resolved]
  - Depressed level of consciousness [Recovered/Resolved]

NARRATIVE: CASE EVENT DATE: 20201005
